FAERS Safety Report 14546907 (Version 31)
Quarter: 2020Q2

REPORT INFORMATION
  Report Type: Spontaneous
  Country: US (occurrence: US)
  Receive Date: 20180219
  Receipt Date: 20200617
  Transmission Date: 20200713
  Serious: No
  Sender: FDA-Public Use
  Company Number: US-PFIZER INC-2018065042

PATIENT
  Age: 70 Year
  Sex: Female
  Weight: 86 kg

DRUGS (15)
  1. CALCIUM PLUS WITH MAGNESIUM + VITAMIN D [Concomitant]
     Dosage: 2 DF, DAILY (CONTAINS 800 IUS VITAMIN D; 1000 MG CALCIUM; 500 MG MAGNESIUM)
     Route: 048
     Dates: start: 2017
  2. IBRANCE [Suspect]
     Active Substance: PALBOCICLIB
     Dosage: 125 MG, CYCLIC (ONCE A DAY FOR 21 DAYS AND THEN OFF FOR 7 DAYS)
     Route: 048
  3. CALCIUM [Suspect]
     Active Substance: CALCIUM
     Dosage: UNK
  4. SUPER CAL MAG [Concomitant]
     Dosage: UNK
  5. IBRANCE [Suspect]
     Active Substance: PALBOCICLIB
     Dosage: 125 MG, CYCLIC (FOR 21 DAYS ON, 7 DAYS OFF)
     Route: 048
  6. IBRANCE [Suspect]
     Active Substance: PALBOCICLIB
     Dosage: 125 MG, CYCLIC (FOR 21 DAYS)
     Route: 048
     Dates: start: 20171212
  7. IBRANCE [Suspect]
     Active Substance: PALBOCICLIB
     Dosage: 125 MG, CYCLIC (FOR 21 DAYS ON, 7 DAYS OFF)
     Route: 048
     Dates: start: 20171212
  8. IBRANCE [Suspect]
     Active Substance: PALBOCICLIB
     Dosage: 125 MG, CYCLIC (FOR 21 DAYS ON, 7 DAYS OFF)
     Route: 048
  9. CALCIUM PLUS WITH MAGNESIUM + VITAMIN D [Concomitant]
     Dosage: UNK
     Dates: start: 2018
  10. IBRANCE [Suspect]
     Active Substance: PALBOCICLIB
     Indication: BREAST CANCER STAGE IV
     Dosage: 125 MG, CYCLIC (ONCE PER DAY FOR 21 DAYS AND OFF FOR 7 DAYS)
     Route: 048
     Dates: start: 20171212
  11. CALCIUM PLUS WITH MAGNESIUM + VITAMIN D [Concomitant]
     Indication: VITAMIN SUPPLEMENTATION
     Dosage: 4 DF, DAILY
     Route: 048
     Dates: start: 20171204, end: 2017
  12. VITAMIN B12 + FOLIC ACID [Concomitant]
     Active Substance: CYANOCOBALAMIN\FOLIC ACID
     Dosage: UNK
  13. LETROZOLE. [Suspect]
     Active Substance: LETROZOLE
     Indication: BREAST CANCER STAGE IV
     Dosage: 2.5 MG, 1X/DAY
     Route: 048
     Dates: start: 20171107
  14. IBRANCE [Suspect]
     Active Substance: PALBOCICLIB
     Dosage: 125 MG, CYCLIC, (ONCE PER DAY FOR 21 DAYS AND OFF FOR 7 DAYS)
     Route: 048
     Dates: start: 20171212
  15. IBUPROFEN. [Concomitant]
     Active Substance: IBUPROFEN
     Dosage: UNK

REACTIONS (26)
  - Anxiety [Unknown]
  - Pre-existing condition improved [Unknown]
  - Fatigue [Not Recovered/Not Resolved]
  - Malaise [Unknown]
  - Sinusitis [Unknown]
  - Gastrointestinal disorder [Unknown]
  - Neutrophil count decreased [Unknown]
  - Fear [Unknown]
  - Therapeutic response unexpected [Unknown]
  - Myalgia [Unknown]
  - White blood cell count decreased [Not Recovered/Not Resolved]
  - Renal disorder [Unknown]
  - Depressed mood [Unknown]
  - Lung disorder [Unknown]
  - Alopecia [Not Recovered/Not Resolved]
  - Stress [Unknown]
  - Glomerular filtration rate decreased [Unknown]
  - Tumour marker increased [Not Recovered/Not Resolved]
  - Immune system disorder [Unknown]
  - Sleep disorder [Unknown]
  - Infection [Recovering/Resolving]
  - Dizziness [Unknown]
  - Asthenia [Recovering/Resolving]
  - Blood creatinine increased [Unknown]
  - Emotional disorder [Unknown]
  - Muscle strain [Unknown]

NARRATIVE: CASE EVENT DATE: 20171206
